FAERS Safety Report 9384452 (Version 1)
Quarter: 2013Q2

REPORT INFORMATION
  Report Type: Spontaneous
  Country: IT (occurrence: None)
  Receive Date: 20130628
  Receipt Date: 20130628
  Transmission Date: 20140414
  Serious: Yes (Other)
  Sender: FDA-Public Use
  Company Number: AUR-APL-2013-05047

PATIENT
  Age: 44 Year
  Sex: Female

DRUGS (2)
  1. AMOXICILLIN + CLAVULANIC ACID [Suspect]
     Indication: COUGH
     Dosage: 2 DOSAGE FORMS, 1 D, ORAL
     Route: 048
     Dates: start: 20130529, end: 20130529
  2. OMEPRAZOLE (OMEPRAZOLE) [Suspect]
     Indication: PRODUCT USED FOR UNKNOWN INDICATION
     Dosage: 20 MG, 1 D, ORAL
     Route: 048
     Dates: start: 20130529, end: 20130529

REACTIONS (1)
  - Lip oedema [None]
